FAERS Safety Report 9795558 (Version 3)
Quarter: 2014Q1

REPORT INFORMATION
  Report Type: Spontaneous
  Country: NO (occurrence: NO)
  Receive Date: 20140103
  Receipt Date: 20140320
  Transmission Date: 20141002
  Serious: Yes (Death, Other)
  Sender: FDA-Public Use
  Company Number: NO-JNJFOC-20131214772

PATIENT
  Age: 18 Year
  Sex: Female

DRUGS (6)
  1. DOXORUBICIN [Suspect]
     Indication: EWING^S SARCOMA
     Route: 042
  2. DOXORUBICIN [Suspect]
     Indication: EWING^S SARCOMA
     Route: 065
  3. CYCLOPHOSPHAMIDE [Suspect]
     Indication: EWING^S SARCOMA
     Route: 065
  4. IFOSFAMIDE [Suspect]
     Indication: EWING^S SARCOMA
     Route: 065
  5. ETOPOSIDE [Suspect]
     Indication: EWING^S SARCOMA
     Route: 065
  6. VINCRISTINE [Suspect]
     Indication: EWING^S SARCOMA
     Route: 065

REACTIONS (8)
  - Lung disorder [Fatal]
  - Acute respiratory distress syndrome [Fatal]
  - Pneumonia [Fatal]
  - Pleural effusion [Fatal]
  - Therapeutic response decreased [Unknown]
  - Neutropenia [Unknown]
  - Ileus [Unknown]
  - Off label use [Unknown]
